FAERS Safety Report 9528729 (Version 5)
Quarter: 2013Q4

REPORT INFORMATION
  Report Type: Spontaneous
  Country: JP (occurrence: JP)
  Receive Date: 20130917
  Receipt Date: 20131227
  Transmission Date: 20140711
  Serious: Yes (Hospitalization)
  Sender: FDA-Public Use
  Company Number: JP-SANOFI-AVENTIS-2013SA091144

PATIENT
  Age: 64 Year
  Sex: Female
  Weight: 69.5 kg

DRUGS (28)
  1. MYSLEE [Suspect]
     Indication: INSOMNIA
     Route: 048
     Dates: start: 20120416
  2. PROGRAF [Suspect]
     Indication: RHEUMATOID ARTHRITIS
     Route: 048
     Dates: start: 20130704, end: 20130828
  3. CERTOLIZUMAB PEGOL [Suspect]
     Indication: RHEUMATOID ARTHRITIS
     Dosage: FREQUENCY-Q2W
     Route: 058
     Dates: start: 20121025
  4. RHEUMATREX [Suspect]
     Indication: RHEUMATOID ARTHRITIS
     Route: 048
     Dates: start: 20130315, end: 20130828
  5. PREDNISOLONE [Suspect]
     Indication: RHEUMATOID ARTHRITIS
     Route: 048
     Dates: start: 20120621, end: 20130828
  6. PREDNISOLONE [Suspect]
     Indication: RHEUMATOID ARTHRITIS
     Route: 048
     Dates: start: 20120621, end: 20130828
  7. CEFZON [Suspect]
     Indication: PRODUCT USED FOR UNKNOWN INDICATION
     Route: 048
     Dates: start: 20130907, end: 20130909
  8. EQUA [Suspect]
     Indication: DIABETES MELLITUS MANAGEMENT
     Route: 048
     Dates: start: 20130906, end: 20130909
  9. LOXONIN [Concomitant]
     Indication: RHEUMATOID ARTHRITIS
     Dosage: FORM- TAPE
     Route: 061
     Dates: start: 20120705
  10. FOLIAMIN [Concomitant]
     Indication: PROPHYLAXIS
     Route: 048
     Dates: start: 20120513, end: 201308
  11. MUCOSTA [Concomitant]
     Indication: PROPHYLAXIS
     Route: 048
     Dates: start: 20120411, end: 201308
  12. MUCOSTA [Concomitant]
     Indication: PROPHYLAXIS
     Route: 048
     Dates: start: 201308, end: 20130828
  13. CALBLOCK [Concomitant]
     Indication: HYPERTENSION
     Route: 048
     Dates: start: 20120309, end: 20130828
  14. VALSARTAN [Concomitant]
     Indication: HYPERTENSION
     Route: 048
     Dates: start: 20120309, end: 20130828
  15. METHYCOBAL [Concomitant]
     Indication: NEUROPATHY PERIPHERAL
     Dosage: DOSE-500 UG
     Route: 048
     Dates: start: 20121220, end: 20130828
  16. ALINAMIN F [Concomitant]
     Indication: NEUROPATHY PERIPHERAL
     Route: 048
     Dates: start: 20121220, end: 20130828
  17. CRESTOR [Concomitant]
     Indication: HYPERLIPIDAEMIA
     Route: 048
     Dates: start: 20130509, end: 20130828
  18. VOLTAREN [Concomitant]
     Indication: RHEUMATOID ARTHRITIS
     Route: 048
     Dates: start: 20120329, end: 20130828
  19. ROCEPHIN [Concomitant]
     Dates: start: 20130828, end: 20130828
  20. ACETAMINOPHEN [Concomitant]
     Route: 048
     Dates: start: 20130828, end: 20130828
  21. ZITHROMAC [Concomitant]
     Route: 048
     Dates: start: 20130828, end: 20130828
  22. PRIMPERAN [Concomitant]
     Dates: start: 20130829
  23. MEROPENEM [Concomitant]
     Dates: start: 20130829
  24. CALONAL [Concomitant]
     Dates: start: 20130829
  25. NOVORAPID [Concomitant]
     Dates: start: 20130829, end: 20130906
  26. BIOFERMIN R [Concomitant]
     Dates: start: 20130830
  27. PARIET [Concomitant]
     Dates: start: 20130830
  28. CEFTRIAXONE [Concomitant]
     Dates: start: 20130906, end: 20130907

REACTIONS (4)
  - Pyelonephritis acute [Recovered/Resolved]
  - Intentional drug misuse [Unknown]
  - Intentional drug misuse [Unknown]
  - Rash [Unknown]
